FAERS Safety Report 16826430 (Version 3)
Quarter: 2019Q4

REPORT INFORMATION
  Report Type: Spontaneous
  Country: JP (occurrence: JP)
  Receive Date: 20190919
  Receipt Date: 20191002
  Transmission Date: 20200122
  Serious: Yes (Death, Other)
  Sender: FDA-Public Use
  Company Number: JP-PFIZER INC-2019403522

PATIENT
  Age: 4 Decade

DRUGS (2)
  1. MEROPEN [Suspect]
     Active Substance: MEROPENEM
     Dosage: 1 G, DAILY (1G DISSOLVED WITH 100 ML OF PHYSIOLOGICAL SALINE SOLUTION)
     Route: 041
  2. SALINE [SODIUM CHLORIDE] [Concomitant]
     Active Substance: SODIUM CHLORIDE
     Indication: VEHICLE SOLUTION USE
     Dosage: 100 ML, UNK

REACTIONS (3)
  - Blood sodium increased [Unknown]
  - Death [Fatal]
  - Oedema [Unknown]
